FAERS Safety Report 26009500 (Version 1)
Quarter: 2025Q4

REPORT INFORMATION
  Report Type: Spontaneous
  Country: US (occurrence: US)
  Receive Date: 20251107
  Receipt Date: 20251107
  Transmission Date: 20260118
  Serious: No
  Sender: LEO PHARM
  Company Number: US-LEO Pharma-384017

PATIENT
  Age: 22 Year
  Sex: Female

DRUGS (2)
  1. ADBRY [Suspect]
     Active Substance: TRALOKINUMAB-LDRM
     Indication: Dermatitis atopic
     Dosage: TREATMENT IS ONGOING??TITRATION: INJECT 2 (300MG) PENS UNDER THE SKIN ON DAY 1 (9/18/2025), THEN 1 (
     Route: 058
     Dates: start: 20250918
  2. ADBRY [Suspect]
     Active Substance: TRALOKINUMAB-LDRM
     Indication: Dermatitis atopic
     Dosage: TREATMENT IS ONGOING??TITRATION: INJECT 2 (300MG) PENS UNDER THE SKIN ON DAY 1 (9/18/2025), THEN 1 (
     Route: 058

REACTIONS (1)
  - Injection site pain [Unknown]
